FAERS Safety Report 7097560-1 (Version None)
Quarter: 2010Q4

REPORT INFORMATION
  Report Type: 
  Country: None (occurrence: None)
  Receive Date: 20101111
  Receipt Date: 20101105
  Transmission Date: 20110411
  Serious: Yes (Hospitalization)
  Sender: FDA-Public Use
  Company Number: US-BAXTER-2010BH027536

PATIENT
  Age: 54 Year
  Sex: Female
  Weight: 94 kg

DRUGS (13)
  1. CYCLOPHOSPHAMIDE [Suspect]
     Indication: B-CELL LYMPHOMA
     Route: 065
     Dates: start: 20100716, end: 20101001
  2. VELCADE [Suspect]
     Indication: B-CELL LYMPHOMA
     Route: 065
     Dates: start: 20100716, end: 20101008
  3. RITUXIMAB [Suspect]
     Indication: B-CELL LYMPHOMA
     Route: 065
     Dates: start: 20100716, end: 20101001
  4. DOXORUBICIN HCL [Suspect]
     Indication: B-CELL LYMPHOMA
     Route: 065
     Dates: start: 20100716, end: 20101001
  5. VINCRISTINE SULFATE [Suspect]
     Indication: B-CELL LYMPHOMA
     Route: 065
     Dates: start: 20100716, end: 20101001
  6. PREDNISONE [Suspect]
     Indication: B-CELL LYMPHOMA
     Route: 048
     Dates: start: 20100716, end: 20101005
  7. ZOFRAN [Concomitant]
     Indication: PRODUCT USED FOR UNKNOWN INDICATION
     Route: 065
  8. XANAX [Concomitant]
     Indication: PRODUCT USED FOR UNKNOWN INDICATION
     Route: 065
  9. PRILOSEC [Concomitant]
     Indication: PRODUCT USED FOR UNKNOWN INDICATION
     Route: 065
  10. FAMOTIDINE [Concomitant]
     Indication: PRODUCT USED FOR UNKNOWN INDICATION
     Route: 065
  11. ACYCLOVIR SODIUM [Concomitant]
     Indication: PRODUCT USED FOR UNKNOWN INDICATION
     Route: 065
  12. OXYCODONE HCL [Concomitant]
     Indication: PRODUCT USED FOR UNKNOWN INDICATION
     Route: 065
  13. COMPAZINE [Concomitant]
     Indication: PRODUCT USED FOR UNKNOWN INDICATION
     Route: 065

REACTIONS (16)
  - ABDOMINAL PAIN [None]
  - BLOOD PRESSURE DIASTOLIC DECREASED [None]
  - BLOOD SODIUM DECREASED [None]
  - CELLULITIS [None]
  - CHEST PAIN [None]
  - COUGH [None]
  - DIARRHOEA [None]
  - DYSPNOEA EXERTIONAL [None]
  - HAEMATOCRIT DECREASED [None]
  - HAEMOGLOBIN DECREASED [None]
  - HAEMOPTYSIS [None]
  - NAUSEA [None]
  - NEUTROPHIL COUNT DECREASED [None]
  - OXYGEN SATURATION DECREASED [None]
  - PLATELET COUNT DECREASED [None]
  - VOMITING [None]
